FAERS Safety Report 6593374-7 (Version None)
Quarter: 2010Q1

REPORT INFORMATION
  Report Type: 
  Country: None (occurrence: None)
  Receive Date: 20100222
  Receipt Date: 20090304
  Transmission Date: 20100710
  Serious: No
  Sender: FDA-Public Use
  Company Number: US-BRISTOL-MYERS SQUIBB COMPANY-14536031

PATIENT
  Sex: Female

DRUGS (3)
  1. ORENCIA [Suspect]
  2. HUMIRA [Suspect]
  3. ENBREL [Suspect]

REACTIONS (3)
  - COUGH [None]
  - DYSPNOEA [None]
  - NAUSEA [None]
